FAERS Safety Report 20031836 (Version 1)
Quarter: 2021Q4

REPORT INFORMATION
  Report Type: Spontaneous
  Country: TW (occurrence: TW)
  Receive Date: 20211103
  Receipt Date: 20211103
  Transmission Date: 20220303
  Serious: Yes (Hospitalization)
  Sender: FDA-Public Use
  Company Number: TW-ABBVIE-21K-153-4139783-00

PATIENT
  Age: 50 Year
  Sex: Male
  Weight: 78.9 kg

DRUGS (13)
  1. HUMIRA [Suspect]
     Active Substance: ADALIMUMAB
     Indication: Psoriatic arthropathy
     Route: 058
     Dates: start: 20170525, end: 20210819
  2. TRAND [Concomitant]
     Indication: Haemorrhage prophylaxis
     Route: 048
     Dates: start: 20210918, end: 20210919
  3. TRAMADOL [Concomitant]
     Active Substance: TRAMADOL
     Indication: Analgesic intervention supportive therapy
     Dosage: Q8H PRN
     Route: 042
     Dates: start: 20210913, end: 20210918
  4. PREDNISOLONE [Concomitant]
     Active Substance: PREDNISOLONE
     Indication: Steroid therapy
     Route: 048
     Dates: start: 20210913, end: 20210919
  5. SILODOSIN [Concomitant]
     Active Substance: SILODOSIN
     Indication: Benign prostatic hyperplasia
     Route: 048
     Dates: start: 20210914, end: 20210919
  6. BETHANECHOL [Concomitant]
     Active Substance: BETHANECHOL
     Indication: Urinary retention
     Dosage: TID AC
     Route: 048
     Dates: start: 20210914, end: 20210919
  7. DIETARY SUPPLEMENT\HERBALS\MILK THISTLE [Concomitant]
     Active Substance: DIETARY SUPPLEMENT\HERBALS\MILK THISTLE
     Indication: Prophylaxis
     Route: 048
     Dates: start: 20210913, end: 20210919
  8. TRANSAMIN [Concomitant]
     Active Substance: TRANEXAMIC ACID
     Indication: Haemorrhage prophylaxis
     Route: 042
     Dates: start: 20210913, end: 20210918
  9. ULSTOP [Concomitant]
     Indication: Peptic ulcer
     Route: 048
     Dates: start: 20210913, end: 20210919
  10. BROWN MIXTURE [Concomitant]
     Indication: Cough
     Route: 048
     Dates: start: 20210913, end: 20210919
  11. DICLOFENAC [Concomitant]
     Active Substance: DICLOFENAC
     Indication: Analgesic therapy
     Route: 048
     Dates: start: 20210913, end: 20210919
  12. ESOMEPRAZOLE [Concomitant]
     Active Substance: ESOMEPRAZOLE
     Indication: Peptic ulcer
     Dosage: QD PRN
     Route: 048
     Dates: start: 20210912, end: 20210919
  13. VETERIN [Concomitant]
     Indication: Antibiotic therapy
     Dosage: STAT
     Route: 042
     Dates: start: 20210912, end: 20210913

REACTIONS (4)
  - Metastases to neck [Recovering/Resolving]
  - Neck mass [Unknown]
  - Diplopia [Unknown]
  - Thyroid cancer [Recovering/Resolving]

NARRATIVE: CASE EVENT DATE: 20210912
